FAERS Safety Report 7825016-4 (Version None)
Quarter: 2011Q4

REPORT INFORMATION
  Report Type: 
  Country: None (occurrence: None)
  Receive Date: 20111019
  Receipt Date: 20101227
  Transmission Date: 20120403
  Serious: No
  Sender: FDA-Public Use
  Company Number: US-BRISTOL-MYERS SQUIBB COMPANY-15394851

PATIENT
  Age: 63 Year
  Sex: Female

DRUGS (1)
  1. AVALIDE [Suspect]
     Indication: HYPERTENSION
     Dosage: 1DF=150MG+ 12.5MG
     Route: 048
     Dates: start: 20040101

REACTIONS (2)
  - DRUG DOSE OMISSION [None]
  - DRUG DISPENSING ERROR [None]
